FAERS Safety Report 15959020 (Version 1)
Quarter: 2019Q1

REPORT INFORMATION
  Report Type: Report from Study
  Country: IT (occurrence: IT)
  Receive Date: 20190214
  Receipt Date: 20190214
  Transmission Date: 20190417
  Serious: Yes (Other)
  Sender: FDA-Public Use
  Company Number: IT-AUROBINDO-AUR-APL-2019-007559

PATIENT

DRUGS (2)
  1. TENOFOVIR DISOPROXIL FILM COATED TABLETS [Suspect]
     Active Substance: TENOFOVIR DISOPROXIL
     Indication: HIV TEST POSITIVE
     Dosage: UNK
     Route: 065
  2. RITONAVIR. [Interacting]
     Active Substance: RITONAVIR
     Indication: HIV TEST POSITIVE
     Dosage: UNK
     Route: 065

REACTIONS (2)
  - Drug interaction [Unknown]
  - Glomerular filtration rate decreased [Recovering/Resolving]
